FAERS Safety Report 15572721 (Version 2)
Quarter: 2018Q4

REPORT INFORMATION
  Report Type: Spontaneous
  Country: PL (occurrence: PL)
  Receive Date: 20181031
  Receipt Date: 20181109
  Transmission Date: 20190205
  Serious: Yes (Hospitalization)
  Sender: FDA-Public Use
  Company Number: PL-ALLERGAN-1850060US

PATIENT
  Age: 71 Year

DRUGS (4)
  1. VANCOMYCIN [Suspect]
     Active Substance: VANCOMYCIN
     Indication: ERYSIPELAS
     Dosage: 1 G, Q12H
     Route: 042
  2. DALBAVANCIN HCL UNK [Suspect]
     Active Substance: DALBAVANCIN HYDROCHLORIDE
     Indication: PSEUDOMONAS INFECTION
     Dosage: 1.5 G, SINGLE
     Route: 065
  3. PENICILLIN CRYSTALLINE [Suspect]
     Active Substance: PENICILLIN G SODIUM
     Indication: ERYSIPELAS
     Dosage: 6 MILLION IU, Q6HR
     Route: 065
  4. CLINDAMYCIN PHOSPHATE. [Suspect]
     Active Substance: CLINDAMYCIN PHOSPHATE
     Indication: ERYSIPELAS
     Dosage: 600 MG, Q8HR
     Route: 042

REACTIONS (3)
  - Abscess limb [Recovering/Resolving]
  - Off label use [Unknown]
  - Drug ineffective for unapproved indication [Unknown]
